FAERS Safety Report 6438893-9 (Version None)
Quarter: 2009Q4

REPORT INFORMATION
  Report Type: 
  Country: None (occurrence: None)
  Receive Date: 20091113
  Receipt Date: 20091102
  Transmission Date: 20100525
  Serious: Yes (Hospitalization, Disabling, Other)
  Sender: FDA-Public Use
  Company Number: PHHY2009JP14952

PATIENT
  Sex: Female
  Weight: 55 kg

DRUGS (12)
  1. ICL670A ICL+DISTAB [Suspect]
     Indication: IRON OVERLOAD
     Dosage: 875 MG DAILY
     Route: 048
     Dates: start: 20081010, end: 20090214
  2. ICL670A ICL+DISTAB [Suspect]
     Dosage: 1125 MG DAILY
     Route: 048
     Dates: start: 20090215, end: 20090518
  3. NEORAL [Concomitant]
     Indication: MYELODYSPLASTIC SYNDROME
     Dosage: 150 MG, UNK
     Route: 048
     Dates: start: 20090618
  4. CRAVIT [Concomitant]
     Dosage: 400 MG, UNK
     Route: 048
     Dates: start: 20090411, end: 20090514
  5. GLAKAY [Concomitant]
     Indication: MYELODYSPLASTIC SYNDROME
     Dosage: 45 MG, UNK
     Route: 048
     Dates: start: 20090527
  6. GASTER D [Concomitant]
     Dosage: 40 MG, UNK
     Route: 048
     Dates: start: 20090611
  7. ITRIZOLE [Concomitant]
     Dosage: 20 ML, UNK
     Route: 048
     Dates: start: 20090813
  8. ZYVOX [Concomitant]
     Dosage: 1200 MG, UNK
     Route: 048
     Dates: start: 20090903, end: 20090917
  9. MAXIPIME [Concomitant]
     Dosage: 2 G, UNK
     Route: 042
     Dates: start: 20090601, end: 20090614
  10. SULBACTAM SODIUM [Concomitant]
     Dosage: 2 G, UNK
     Route: 042
     Dates: start: 20090518, end: 20090601
  11. PANTOSIN [Concomitant]
     Dosage: 1.5 G, UNK
     Route: 048
     Dates: start: 20090409
  12. MAGNESIUM OXIDE [Concomitant]
     Dosage: 1.5 G, UNK
     Route: 048
     Dates: start: 20090409

REACTIONS (12)
  - ACTIVITIES OF DAILY LIVING IMPAIRED [None]
  - ALANINE AMINOTRANSFERASE INCREASED [None]
  - ASPARTATE AMINOTRANSFERASE INCREASED [None]
  - BLOOD ALKALINE PHOSPHATASE INCREASED [None]
  - BLOOD LACTATE DEHYDROGENASE INCREASED [None]
  - DECREASED APPETITE [None]
  - FEBRILE NEUTROPENIA [None]
  - GAMMA-GLUTAMYLTRANSFERASE INCREASED [None]
  - INFECTION [None]
  - NEUTROPHIL COUNT DECREASED [None]
  - PERFORMANCE STATUS DECREASED [None]
  - WHITE BLOOD CELL COUNT DECREASED [None]
